FAERS Safety Report 10132245 (Version 1)
Quarter: 2014Q2

REPORT INFORMATION
  Report Type: Spontaneous
  Country: GB (occurrence: GB)
  Receive Date: 20140428
  Receipt Date: 20140428
  Transmission Date: 20141212
  Serious: Yes (Death)
  Sender: FDA-Public Use
  Company Number: GB-NOVOPROD-407000

PATIENT
  Sex: Female

DRUGS (1)
  1. NORDITROPIN [Suspect]
     Indication: GROWTH HORMONE DEFICIENCY
     Dosage: 0.4 MG, QD (ONCE DAILY)
     Route: 058
     Dates: start: 20091009

REACTIONS (1)
  - Death [Fatal]
